FAERS Safety Report 7827471-2 (Version None)
Quarter: 2011Q4

REPORT INFORMATION
  Report Type: 
  Country: None (occurrence: None)
  Receive Date: 20111020
  Receipt Date: 20111012
  Transmission Date: 20120403
  Serious: Yes (Death, Other)
  Sender: FDA-Public Use
  Company Number: DE-AMGEN-DEUNI2011027814

PATIENT
  Age: 73 Year
  Sex: Female
  Weight: 58 kg

DRUGS (16)
  1. LEVOFLOXACIN [Concomitant]
     Dosage: 500 MG, UNK
     Route: 048
  2. METOPROLOL SUCCINATE [Concomitant]
     Dosage: UNK
  3. DIFLUCAN [Concomitant]
     Dosage: 100 MG, UNK
  4. CAMPATH [Concomitant]
     Indication: CHRONIC LYMPHOCYTIC LEUKAEMIA
     Dosage: 30 MG, UNK
     Route: 058
  5. PANTOPRAZOLE SODIUM [Concomitant]
     Dosage: 40 MG, UNK
  6. COTRIM [Concomitant]
     Dosage: 960 MG, UNK
  7. AMIODARONE HCL [Concomitant]
  8. NEULASTA [Suspect]
     Indication: FEBRILE NEUTROPENIA
  9. ACYCLOVIR [Concomitant]
     Dosage: 400 MG, UNK
  10. LEVOTHYROXINE SODIUM [Concomitant]
     Dosage: 10 MUG, UNK
  11. ASPIRIN [Concomitant]
  12. DEXAMETHASONE [Concomitant]
     Indication: CHRONIC LYMPHOCYTIC LEUKAEMIA
     Dosage: 40 MG, UNK
     Route: 048
  13. AUGMENTIN '125' [Concomitant]
  14. NEULASTA [Suspect]
     Indication: NEUTROPENIA
     Dosage: 6 MG, 2 TIMES/WK
  15. CALCIMAGON [Concomitant]
  16. ENOXAPARIN SODIUM [Concomitant]
     Dosage: 0.5 ML, UNK

REACTIONS (8)
  - PNEUMONIA PRIMARY ATYPICAL [None]
  - C-REACTIVE PROTEIN INCREASED [None]
  - COUGH [None]
  - OROPHARYNGEAL PAIN [None]
  - INFECTION [None]
  - ACUTE RESPIRATORY FAILURE [None]
  - NASOPHARYNGITIS [None]
  - URINARY TRACT INFECTION [None]
